FAERS Safety Report 8481361 (Version 5)
Quarter: 2013Q1

REPORT INFORMATION
  Report Type: Spontaneous
  Country: US (occurrence: US)
  Receive Date: 20120329
  Receipt Date: 20130321
  Transmission Date: 20140127
  Serious: Yes (Other)
  Sender: FDA-Public Use
  Company Number: US-AMGEN-USASP2012019419

PATIENT
  Age: 61 Year
  Sex: Male

DRUGS (18)
  1. PROCRIT [Suspect]
     Indication: ANAEMIA
     Dosage: UNK UNK, QWK
     Route: 058
     Dates: start: 20100527, end: 20120229
  2. INTERFERON [Concomitant]
     Indication: CHRONIC HEPATITIS C
     Dosage: UNK
     Dates: start: 20110301, end: 20111229
  3. RIBAVIRIN [Concomitant]
     Indication: CHRONIC HEPATITIS C
     Dosage: UNK
     Dates: start: 20110301, end: 20111229
  4. SPIRIVA [Concomitant]
     Dosage: UNK
  5. DOXAZOSIN [Concomitant]
     Dosage: UNK
  6. LYRICA [Concomitant]
     Dosage: UNK
  7. RANITIDINE [Concomitant]
     Dosage: UNK
  8. LANTUS [Concomitant]
     Dosage: UNK
  9. LEXAPRO [Concomitant]
     Dosage: UNK
  10. DIOVAN [Concomitant]
     Dosage: UNK
  11. METFORMIN [Concomitant]
     Dosage: UNK
  12. LISINOPRIL [Concomitant]
  13. TRAZODONE [Concomitant]
  14. PROAIR HFA [Concomitant]
     Dosage: UNK
  15. ASPIRIN [Concomitant]
     Dosage: UNK
  16. TRAMADOL [Concomitant]
  17. EXJADE [Concomitant]
     Dosage: UNK
     Dates: start: 201203
  18. TRILIPIX [Concomitant]

REACTIONS (7)
  - Hypochromic anaemia [Not Recovered/Not Resolved]
  - Therapeutic response decreased [Unknown]
  - Pancytopenia [Unknown]
  - Bone marrow reticulin fibrosis [Unknown]
  - Aplasia pure red cell [Recovering/Resolving]
  - Anti-erythropoietin antibody positive [Unknown]
  - Neutralising antibodies positive [Unknown]
